FAERS Safety Report 4456002-2 (Version None)
Quarter: 2004Q3

REPORT INFORMATION
  Report Type: 
  Country: None (occurrence: None)
  Receive Date: 20040920
  Receipt Date: 20040906
  Transmission Date: 20050211
  Serious: Yes (Hospitalization)
  Sender: FDA-Public Use
  Company Number: 2004-00798FE

PATIENT
  Age: 66 Year
  Sex: Male

DRUGS (1)
  1. PENTASA [Suspect]
     Indication: COLITIS ULCERATIVE
     Dosage: 2 G
     Route: 048
     Dates: start: 20040517, end: 20040703

REACTIONS (8)
  - C-REACTIVE PROTEIN INCREASED [None]
  - CHILLS [None]
  - NEPHRITIS ALLERGIC [None]
  - PROTEINURIA [None]
  - PYREXIA [None]
  - RENAL FAILURE [None]
  - TRANSAMINASES INCREASED [None]
  - VOMITING [None]
